FAERS Safety Report 14703707 (Version 5)
Quarter: 2019Q4

REPORT INFORMATION
  Report Type: Spontaneous
  Country: US (occurrence: US)
  Receive Date: 20180402
  Receipt Date: 20191031
  Transmission Date: 20200122
  Serious: No
  Sender: FDA-Public Use
  Company Number: US-PFIZER INC-2018121576

PATIENT
  Age: 46 Year
  Sex: Female
  Weight: 77.98 kg

DRUGS (5)
  1. DOCETAXEL. [Suspect]
     Active Substance: DOCETAXEL
     Indication: BREAST CANCER FEMALE
     Dosage: 140 MG, EVERY 3 WEEKS (FOR 6 CYCLES)
     Dates: start: 20130510, end: 20130830
  2. ADRIAMYCIN [Concomitant]
     Active Substance: DOXORUBICIN HYDROCHLORIDE
     Indication: CHEMOTHERAPY
     Dosage: UNK
  3. NEOSAR [Concomitant]
     Active Substance: CYCLOPHOSPHAMIDE
     Indication: CHEMOTHERAPY
     Dosage: UNK
  4. DOXIL [Concomitant]
     Active Substance: DOXORUBICIN HYDROCHLORIDE
     Indication: CHEMOTHERAPY
     Dosage: UNK
  5. TAXOTERE [Suspect]
     Active Substance: DOCETAXEL
     Indication: BREAST CANCER FEMALE
     Dosage: 140 MG, EVERY 3 WEEKS (FOR 6 CYCLES)
     Dates: start: 20130510, end: 20130830

REACTIONS (5)
  - Hair disorder [Recovered/Resolved]
  - Alopecia [Recovered/Resolved]
  - Madarosis [Recovered/Resolved]
  - Hair texture abnormal [Recovered/Resolved]
  - Hair colour changes [Recovered/Resolved]

NARRATIVE: CASE EVENT DATE: 201402
